FAERS Safety Report 7587475-4 (Version None)
Quarter: 2011Q3

REPORT INFORMATION
  Report Type: 
  Country: None (occurrence: None)
  Receive Date: 20110704
  Receipt Date: 20110623
  Transmission Date: 20111222
  Serious: No
  Sender: FDA-Public Use
  Company Number: US-BIOGENIDEC-2011BI023544

PATIENT
  Sex: Female

DRUGS (3)
  1. AVONEX [Suspect]
     Indication: MULTIPLE SCLEROSIS
     Route: 030
     Dates: start: 20110314
  2. AVONEX [Suspect]
     Route: 030
     Dates: start: 20031001, end: 20090305
  3. TYSABRI [Concomitant]
     Indication: MULTIPLE SCLEROSIS
     Route: 042
     Dates: start: 20090902, end: 20100901

REACTIONS (3)
  - PAIN [None]
  - INFUSION SITE REACTION [None]
  - FATIGUE [None]
